FAERS Safety Report 4291171-9 (Version None)
Quarter: 2004Q1

REPORT INFORMATION
  Report Type: 
  Country: None (occurrence: None)
  Receive Date: 20040209
  Receipt Date: 20040122
  Transmission Date: 20041129
  Serious: No
  Sender: FDA-Public Use
  Company Number: 2004US002006

PATIENT
  Age: 40 Year
  Sex: Male
  Weight: 79.8 kg

DRUGS (5)
  1. ALOXI [Suspect]
     Indication: PROPHYLAXIS OF NAUSEA AND VOMITING
     Dosage: 0.25 MG, SINGLE, INTRAVENOUS
     Route: 042
     Dates: start: 20040121, end: 20040121
  2. CARBOPLATIN [Suspect]
     Indication: NASOPHARYNGEAL CANCER
     Dosage: 200 MG, SINGLE, INTRAVENOUS
     Route: 042
     Dates: start: 20040121, end: 20040121
  3. ZOMETA [Concomitant]
  4. DECADRON [Concomitant]
  5. ALLEGRA [Concomitant]

REACTIONS (8)
  - CARDIOVASCULAR DISORDER [None]
  - ERYTHEMA [None]
  - GENITAL BURNING SENSATION [None]
  - HEADACHE [None]
  - HYPERHIDROSIS [None]
  - HYPERSENSITIVITY [None]
  - PRURITUS GENERALISED [None]
  - TACHYCARDIA [None]
